FAERS Safety Report 7723367-5 (Version None)
Quarter: 2011Q3

REPORT INFORMATION
  Report Type: 
  Country: None (occurrence: None)
  Receive Date: 20110901
  Receipt Date: 20110824
  Transmission Date: 20111222
  Serious: Yes (Other)
  Sender: FDA-Public Use
  Company Number: AU-SANOFI-AVENTIS-2011SA054248

PATIENT
  Age: 37 Year
  Sex: Female

DRUGS (6)
  1. CITALOPRAM [Concomitant]
  2. LEVOTHYROXINE SODIUM [Concomitant]
  3. ALL OTHER THERAPEUTIC PRODUCTS [Concomitant]
  4. CALCIUM CARBONATE [Concomitant]
  5. VITAMIN D [Concomitant]
  6. ARAVA [Suspect]
     Route: 048
     Dates: start: 20090801

REACTIONS (4)
  - BLOOD UREA INCREASED [None]
  - BLOOD CREATININE INCREASED [None]
  - TUBULOINTERSTITIAL NEPHRITIS [None]
  - LETHARGY [None]
